FAERS Safety Report 5224258-4 (Version None)
Quarter: 2007Q1

REPORT INFORMATION
  Report Type: 
  Country: None (occurrence: None)
  Receive Date: 20070130
  Receipt Date: 20070122
  Transmission Date: 20070707
  Serious: Yes (Death)
  Sender: FDA-Public Use
  Company Number: CA-ELI_LILLY_AND_COMPANY-CA200701001499

PATIENT
  Age: 37 Year
  Sex: Male
  Weight: 205 kg

DRUGS (1)
  1. XIGRIS [Suspect]
     Indication: ABDOMINAL SEPSIS
     Dosage: UNK, UNK
     Dates: start: 20070103

REACTIONS (1)
  - DEATH [None]
